FAERS Safety Report 18228237 (Version 44)
Quarter: 2023Q4

REPORT INFORMATION
  Report Type: Report from Study
  Country: FR (occurrence: FR)
  Receive Date: 20200903
  Receipt Date: 20231019
  Transmission Date: 20240110
  Serious: Yes (Death, Life-Threatening, Hospitalization, Other)
  Sender: FDA-Public Use
  Company Number: FR-GLAXOSMITHKLINE-FR2020158924

PATIENT
  Age: 74 Year
  Sex: Male

DRUGS (162)
  1. LANSOPRAZOLE [Suspect]
     Active Substance: LANSOPRAZOLE
     Indication: Gastrointestinal disorder prophylaxis
     Dosage: 3 MILLIGRAM, QD
     Route: 048
     Dates: start: 20200210, end: 20200805
  2. LANSOPRAZOLE [Suspect]
     Active Substance: LANSOPRAZOLE
     Indication: Prophylaxis
     Dosage: 3 MILLIGRAM, QD
     Route: 048
     Dates: start: 20200710, end: 20200805
  3. LANSOPRAZOLE [Suspect]
     Active Substance: LANSOPRAZOLE
     Indication: Stress ulcer
     Dosage: 78 MG, 1X/DAY
     Route: 048
     Dates: start: 20200710, end: 20200805
  4. LANSOPRAZOLE [Suspect]
     Active Substance: LANSOPRAZOLE
     Indication: Prophylaxis
     Dosage: 30 MILLIGRAM, QD
     Route: 048
  5. LANSOPRAZOLE [Suspect]
     Active Substance: LANSOPRAZOLE
     Dosage: 30 MILLIGRAM, QD
     Route: 048
     Dates: start: 20200710, end: 20200805
  6. LANSOPRAZOLE [Suspect]
     Active Substance: LANSOPRAZOLE
     Dosage: 78 MILLIGRAM, QD
     Route: 048
  7. LANSOPRAZOLE [Suspect]
     Active Substance: LANSOPRAZOLE
     Dosage: 78 MILLIGRAM, QD
     Route: 048
     Dates: start: 20200805
  8. LANSOPRAZOLE [Suspect]
     Active Substance: LANSOPRAZOLE
     Dosage: 81 MILLIGRAM
  9. SERTRALINE HYDROCHLORIDE [Suspect]
     Active Substance: SERTRALINE HYDROCHLORIDE
     Indication: Depression
     Dosage: 746.35 MILLIGRAM
     Route: 048
     Dates: start: 20200726, end: 20200810
  10. SERTRALINE HYDROCHLORIDE [Suspect]
     Active Substance: SERTRALINE HYDROCHLORIDE
     Indication: Pneumonia
     Dosage: 50 MILLIGRAM, QD (50 MG, SINGLE )
     Route: 048
     Dates: start: 20200726, end: 20200810
  11. SERTRALINE HYDROCHLORIDE [Suspect]
     Active Substance: SERTRALINE HYDROCHLORIDE
     Dosage: 50 MILLIGRAM, QD
     Route: 048
  12. SERTRALINE HYDROCHLORIDE [Suspect]
     Active Substance: SERTRALINE HYDROCHLORIDE
     Dosage: 746.35 MILLIGRAM
     Route: 048
     Dates: start: 20200726, end: 20200810
  13. SERTRALINE HYDROCHLORIDE [Suspect]
     Active Substance: SERTRALINE HYDROCHLORIDE
     Dosage: 3 INTERNATIONAL UNIT, TID
     Route: 042
     Dates: start: 20200708, end: 20200715
  14. SERTRALINE HYDROCHLORIDE [Suspect]
     Active Substance: SERTRALINE HYDROCHLORIDE
     Dosage: 9 INTERNATIONAL UNIT, QD
     Route: 042
     Dates: start: 20200708, end: 20200715
  15. METHYLPREDNISOLONE SODIUM SUCCINATE [Suspect]
     Active Substance: METHYLPREDNISOLONE SODIUM SUCCINATE
     Indication: Acute respiratory distress syndrome
     Dosage: 1800 MILLIGRAM, Q2WEEKS
     Route: 042
  16. METHYLPREDNISOLONE SODIUM SUCCINATE [Suspect]
     Active Substance: METHYLPREDNISOLONE SODIUM SUCCINATE
     Dosage: 120 MG, 1D
     Route: 042
     Dates: start: 20200708, end: 20200723
  17. METHYLPREDNISOLONE SODIUM SUCCINATE [Suspect]
     Active Substance: METHYLPREDNISOLONE SODIUM SUCCINATE
     Dosage: 1200 MILLIGRAM, QD
     Route: 042
  18. METHYLPREDNISOLONE SODIUM SUCCINATE [Suspect]
     Active Substance: METHYLPREDNISOLONE SODIUM SUCCINATE
     Dosage: 1200 MILLIGRAM, QD
     Route: 042
     Dates: start: 20200708, end: 20200723
  19. PIPERACILLIN SODIUM\TAZOBACTAM SODIUM [Suspect]
     Active Substance: PIPERACILLIN SODIUM\TAZOBACTAM SODIUM
     Indication: Pneumonia
     Dosage: 12 GRAM, QD
     Route: 042
     Dates: start: 20200723, end: 20200730
  20. PIPERACILLIN SODIUM\TAZOBACTAM SODIUM [Suspect]
     Active Substance: PIPERACILLIN SODIUM\TAZOBACTAM SODIUM
     Indication: Tracheobronchitis
     Dosage: 4 GRAM, TID
     Route: 042
     Dates: start: 20200723, end: 20200730
  21. PIPERACILLIN SODIUM\TAZOBACTAM SODIUM [Suspect]
     Active Substance: PIPERACILLIN SODIUM\TAZOBACTAM SODIUM
     Indication: Infection
     Dosage: 84 GRAM
     Route: 042
  22. PIPERACILLIN SODIUM\TAZOBACTAM SODIUM [Suspect]
     Active Substance: PIPERACILLIN SODIUM\TAZOBACTAM SODIUM
     Dosage: 252 GRAM, QD
     Route: 042
     Dates: start: 20200723, end: 20200730
  23. LORAZEPAM [Suspect]
     Active Substance: LORAZEPAM
     Indication: Anxiolytic therapy
     Dosage: 10 MILLIGRAM, QD
     Route: 048
     Dates: start: 20200726, end: 20200727
  24. LORAZEPAM [Suspect]
     Active Substance: LORAZEPAM
     Dosage: 2.5 MILLIGRAM, QID
     Route: 048
     Dates: start: 20200726, end: 20200727
  25. LORAZEPAM [Suspect]
     Active Substance: LORAZEPAM
     Dosage: 10 MILLIGRAM, QD
     Route: 048
     Dates: start: 20200726, end: 20200727
  26. LORAZEPAM [Suspect]
     Active Substance: LORAZEPAM
     Dosage: 40 MILLIGRAM, QD
     Route: 048
     Dates: start: 20200726, end: 20200727
  27. LORAZEPAM [Suspect]
     Active Substance: LORAZEPAM
     Dosage: 10 MILLIGRAM
     Route: 048
  28. ISUPREL [Suspect]
     Active Substance: ISOPROTERENOL HYDROCHLORIDE
     Dosage: UNK
     Route: 065
     Dates: start: 20200711, end: 20200713
  29. REMIFENTANIL [Suspect]
     Active Substance: REMIFENTANIL
     Indication: Sedation
     Dosage: 1 MICROGRAM
     Route: 042
     Dates: start: 20200720, end: 20200730
  30. REMIFENTANIL [Suspect]
     Active Substance: REMIFENTANIL
     Dosage: 0.1 MICROGRAM/KILOGRAM
     Route: 042
     Dates: start: 20200720, end: 20200730
  31. DIAMOX SEQUELS [Suspect]
     Active Substance: ACETAZOLAMIDE
     Dosage: UNK
     Route: 058
  32. MIDAZOLAM HYDROCHLORIDE [Suspect]
     Active Substance: MIDAZOLAM HYDROCHLORIDE
     Indication: Seizure
     Dosage: 600 MG (PRE-FILLED SYRINGE)
     Route: 042
  33. MIDAZOLAM HYDROCHLORIDE [Suspect]
     Active Substance: MIDAZOLAM HYDROCHLORIDE
     Indication: Sedation
     Dosage: 5 MILLIGRAM, Q1HR
     Route: 042
     Dates: start: 20200709, end: 20200713
  34. URAPIDIL [Suspect]
     Active Substance: URAPIDIL
     Indication: Hypertension
     Dosage: 5 MILLIGRAM, Q1HR
     Route: 042
     Dates: start: 20200709, end: 20200709
  35. URAPIDIL [Suspect]
     Active Substance: URAPIDIL
     Dosage: 120 MILLIGRAM
     Route: 065
  36. MORPHINE HYDROCHLORIDE [Suspect]
     Active Substance: MORPHINE HYDROCHLORIDE
     Dosage: UNK
     Route: 065
  37. ASCORBIC ACID\POLYETHYLENE GLYCOL 3350\POTASSIUM CHLORIDE\SODIUM ASCOR [Suspect]
     Active Substance: ASCORBIC ACID\POLYETHYLENE GLYCOL 3350\POTASSIUM CHLORIDE\SODIUM ASCORBATE\SODIUM CHLORIDE\SODIUM SU
     Indication: Constipation
     Dosage: 4 DOSAGE FORM, QD
     Route: 048
     Dates: start: 20200713, end: 20200715
  38. ASCORBIC ACID\POLYETHYLENE GLYCOL 3350\POTASSIUM CHLORIDE\SODIUM ASCOR [Suspect]
     Active Substance: ASCORBIC ACID\POLYETHYLENE GLYCOL 3350\POTASSIUM CHLORIDE\SODIUM ASCORBATE\SODIUM CHLORIDE\SODIUM SU
     Dosage: 16 DOSAGE FORM
     Route: 048
  39. ASCORBIC ACID\POLYETHYLENE GLYCOL 3350\POTASSIUM CHLORIDE\SODIUM ASCOR [Suspect]
     Active Substance: ASCORBIC ACID\POLYETHYLENE GLYCOL 3350\POTASSIUM CHLORIDE\SODIUM ASCORBATE\SODIUM CHLORIDE\SODIUM SU
     Dosage: 2 DOSAGE FORM, BID
     Route: 048
     Dates: start: 20200713, end: 20200715
  40. ASCORBIC ACID\POLYETHYLENE GLYCOL 3350\POTASSIUM CHLORIDE\SODIUM ASCOR [Suspect]
     Active Substance: ASCORBIC ACID\POLYETHYLENE GLYCOL 3350\POTASSIUM CHLORIDE\SODIUM ASCORBATE\SODIUM CHLORIDE\SODIUM SU
     Dosage: 12 DOSAGE FORM, QD
  41. MORPHINE SULFATE [Suspect]
     Active Substance: MORPHINE SULFATE
     Dosage: UNK
     Route: 065
  42. MORPHINE [Suspect]
     Active Substance: MORPHINE
     Dosage: UNK
     Route: 065
  43. RACECADOTRIL [Suspect]
     Active Substance: RACECADOTRIL
     Dosage: 100 MILLIGRAM
     Route: 058
     Dates: start: 20200727, end: 20200804
  44. URAPIDIL [Suspect]
     Active Substance: URAPIDIL
     Indication: Hypertension
     Dosage: 5 MILLIGRAM, Q1HR
     Route: 042
     Dates: start: 20200709, end: 20200709
  45. URAPIDIL [Suspect]
     Active Substance: URAPIDIL
     Dosage: 120 MILLIGRAM
     Route: 065
  46. URAPIDIL [Suspect]
     Active Substance: URAPIDIL
     Dosage: 5 MG, 1X/DAY
     Route: 042
     Dates: start: 20200709, end: 20200709
  47. DIAZEPAM [Suspect]
     Active Substance: DIAZEPAM
     Dosage: 746.35 MILLIGRAM
     Route: 065
  48. DIAZEPAM [Suspect]
     Active Substance: DIAZEPAM
     Dosage: UNK
  49. ACETAMINOPHEN [Suspect]
     Active Substance: ACETAMINOPHEN
     Indication: Pyrexia
     Dosage: 1 GRAM
     Route: 042
     Dates: start: 20200719, end: 20200730
  50. ACETAMINOPHEN [Suspect]
     Active Substance: ACETAMINOPHEN
     Dosage: UNK
  51. OTILIMAB [Suspect]
     Active Substance: OTILIMAB
     Indication: Coronavirus infection
     Dosage: 1  DOSAGE FORM
     Route: 058
     Dates: start: 20200708
  52. IPRATROPIUM [Suspect]
     Active Substance: IPRATROPIUM
     Indication: Inhalation therapy
     Dosage: 1.5 MILLIGRAM, TID
     Route: 055
     Dates: start: 20200730, end: 20200803
  53. IPRATROPIUM [Suspect]
     Active Substance: IPRATROPIUM
     Dosage: 1.5 MILLIGRAM
     Route: 055
  54. IPRATROPIUM [Suspect]
     Active Substance: IPRATROPIUM
     Dosage: 6 MILLIGRAM
     Route: 055
  55. IPRATROPIUM [Suspect]
     Active Substance: IPRATROPIUM
     Dosage: 1.5 MILLIGRAM
  56. IPRATROPIUM [Suspect]
     Active Substance: IPRATROPIUM
     Dosage: 6 MILLIGRAM
     Route: 065
  57. IPRATROPIUM [Suspect]
     Active Substance: IPRATROPIUM
     Dosage: 0.5 MILLIGRAM, TID
     Route: 050
     Dates: start: 20200730, end: 20200803
  58. IPRATROPIUM [Suspect]
     Active Substance: IPRATROPIUM
     Dosage: 6 MILLIGRAM
     Route: 055
  59. IPRATROPIUM [Suspect]
     Active Substance: IPRATROPIUM
     Dosage: 1.5 MG, 3X/DAY
     Route: 055
     Dates: start: 20200730, end: 20200803
  60. IPRATROPIUM [Suspect]
     Active Substance: IPRATROPIUM
     Dosage: 4.5 MILLIGRAM, TID
     Route: 055
     Dates: start: 20200730, end: 20200803
  61. IPRATROPIUM [Suspect]
     Active Substance: IPRATROPIUM
     Dosage: 4.5 MILLIGRAM, TID
     Route: 055
  62. DUPHALAC [Suspect]
     Active Substance: LACTULOSE
     Indication: Constipation
     Dosage: 20 GRAM, BID
     Route: 048
     Dates: start: 20200713, end: 20200715
  63. DUPHALAC [Suspect]
     Active Substance: LACTULOSE
     Dosage: 40 GRAM, QD
     Route: 048
     Dates: start: 20200713, end: 20200715
  64. DUPHALAC [Suspect]
     Active Substance: LACTULOSE
     Dosage: 80 MILLIGRAM
     Route: 048
  65. DUPHALAC [Suspect]
     Active Substance: LACTULOSE
     Dosage: 40 MILLIGRAM
     Route: 048
     Dates: start: 20200713, end: 20200715
  66. HYDROXYZINE [Suspect]
     Active Substance: HYDROXYZINE HYDROCHLORIDE
     Dosage: UNK
     Route: 065
  67. POTASSIUM CHLORIDE [Suspect]
     Active Substance: POTASSIUM CHLORIDE
     Dosage: UNK
     Route: 065
  68. OXAZEPAM [Suspect]
     Active Substance: OXAZEPAM
     Indication: Anxiolytic therapy
     Dosage: 10 MILLIGRAM, QD
     Route: 048
     Dates: start: 20200802, end: 20200804
  69. OXAZEPAM [Suspect]
     Active Substance: OXAZEPAM
     Dosage: 20 MG, 1X/DAY
     Route: 048
  70. OXAZEPAM [Suspect]
     Active Substance: OXAZEPAM
     Dosage: 10 MILLIGRAM, QD
     Route: 048
  71. CALCIUM GLUCONATE [Suspect]
     Active Substance: CALCIUM GLUCONATE
     Dosage: UNK
     Route: 065
  72. CLONIDINE HYDROCHLORIDE [Suspect]
     Active Substance: CLONIDINE HYDROCHLORIDE
     Indication: Hypertension
     Dosage: UNK, 1X/DAY
     Route: 042
     Dates: start: 20200717, end: 20200717
  73. CLONIDINE HYDROCHLORIDE [Suspect]
     Active Substance: CLONIDINE HYDROCHLORIDE
     Indication: Hypertension
  74. CLONIDINE HYDROCHLORIDE [Suspect]
     Active Substance: CLONIDINE HYDROCHLORIDE
     Indication: Sedation
  75. CEFOTAXIME [Suspect]
     Active Substance: CEFOTAXIME SODIUM
     Indication: Pneumonia
     Dosage: 42 GRAM
     Route: 042
  76. CEFOTAXIME [Suspect]
     Active Substance: CEFOTAXIME SODIUM
     Dosage: 6 GRAM, QD
     Route: 042
     Dates: start: 20200708, end: 20200715
  77. CEFOTAXIME [Suspect]
     Active Substance: CEFOTAXIME SODIUM
     Dosage: 2 GRAM, TID
     Route: 042
     Dates: start: 20200708, end: 20200715
  78. CEFOTAXIME [Suspect]
     Active Substance: CEFOTAXIME SODIUM
     Dosage: 6 GRAM
     Route: 042
  79. CEFOTAXIME [Suspect]
     Active Substance: CEFOTAXIME SODIUM
     Dosage: 42 GRAM, BID
     Route: 042
     Dates: start: 20200708
  80. HUMALOG [Suspect]
     Active Substance: INSULIN LISPRO
     Dosage: 1 IU
     Route: 042
     Dates: start: 20200709, end: 20200730
  81. SPIRAMYCIN [Suspect]
     Active Substance: SPIRAMYCIN
     Indication: Pneumonia
     Dosage: 3000000 INTERNATIONAL UNIT, TID
     Route: 042
     Dates: start: 20200708, end: 20200715
  82. SPIRAMYCIN [Suspect]
     Active Substance: SPIRAMYCIN
     Dosage: 63 INTERNATIONAL UNIT
     Route: 042
  83. SUFENTANIL CITRATE [Suspect]
     Active Substance: SUFENTANIL CITRATE
     Indication: Sedation
     Dosage: 33 MICROGRAM
     Route: 042
     Dates: start: 20200709, end: 20200717
  84. SUFENTANIL CITRATE [Suspect]
     Active Substance: SUFENTANIL CITRATE
     Indication: Gait disturbance
     Dosage: UNK
     Route: 042
     Dates: start: 20200709, end: 20200717
  85. SUFENTANIL CITRATE [Suspect]
     Active Substance: SUFENTANIL CITRATE
     Indication: Analgesic therapy
     Dosage: 4276.8 MICROGRAM
     Route: 065
  86. SUFENTANIL CITRATE [Suspect]
     Active Substance: SUFENTANIL CITRATE
     Dosage: 4276.8 MICROGRAM
     Route: 042
  87. THIAMINE HYDROCHLORIDE [Suspect]
     Active Substance: THIAMINE HYDROCHLORIDE
     Dosage: UNK
     Route: 065
  88. PROPOFOL [Suspect]
     Active Substance: PROPOFOL
     Indication: Sedation
     Dosage: 150 MG Q1HR
     Route: 042
     Dates: start: 20200709, end: 20200720
  89. IMODIUM [Suspect]
     Active Substance: LOPERAMIDE HYDROCHLORIDE
     Indication: Diarrhoea
     Dosage: 4 MG, SINGLE
     Route: 065
  90. IMODIUM [Suspect]
     Active Substance: LOPERAMIDE HYDROCHLORIDE
     Dosage: 4 MG
     Route: 048
     Dates: start: 20200804, end: 20200804
  91. IMODIUM [Suspect]
     Active Substance: LOPERAMIDE HYDROCHLORIDE
     Dosage: UNK
     Route: 065
  92. LOVENOX [Suspect]
     Active Substance: ENOXAPARIN SODIUM
     Indication: Phlebitis
     Dosage: 6000 IU, SINGLE
     Route: 058
     Dates: start: 20200708, end: 20200807
  93. LOVENOX [Suspect]
     Active Substance: ENOXAPARIN SODIUM
     Dosage: 180 KILO-INTERNATIONAL UNIT
     Route: 065
  94. NOREPINEPHRINE [Suspect]
     Active Substance: NOREPINEPHRINE
     Indication: Sedation
     Dosage: 0.8 MILLIGRAM, Q1HR
     Route: 042
     Dates: start: 20200709, end: 20200712
  95. NOREPINEPHRINE [Suspect]
     Active Substance: NOREPINEPHRINE
     Dosage: 8 MILLIGRAM, QD
     Route: 042
     Dates: start: 20200709, end: 20200712
  96. NOREPINEPHRINE [Suspect]
     Active Substance: NOREPINEPHRINE
     Dosage: 0.8 MEQ, CYCLIC (19.20 MEQ MILLIEQUIVALENT(S) ( 0.8 MEQ MILLIEQUIVALENT(S) ),1 IN 1HOUR)
     Route: 042
     Dates: start: 20200709, end: 20200712
  97. CALCIUM PHOSPHATE, DIBASIC, ANHYDROUS\MAGNESIUM GLYCEROPHOSPHATE\PHOSP [Suspect]
     Active Substance: CALCIUM PHOSPHATE, DIBASIC, ANHYDROUS\MAGNESIUM GLYCEROPHOSPHATE\PHOSPHORIC ACID\SODIUM PHOSPHATE, D
     Indication: Pneumonia
     Dosage: 6 GRAM, QD
     Route: 042
     Dates: start: 20200708, end: 20200715
  98. CALCIUM PHOSPHATE, DIBASIC, ANHYDROUS\MAGNESIUM GLYCEROPHOSPHATE\PHOSP [Suspect]
     Active Substance: CALCIUM PHOSPHATE, DIBASIC, ANHYDROUS\MAGNESIUM GLYCEROPHOSPHATE\PHOSPHORIC ACID\SODIUM PHOSPHATE, D
     Dosage: UNK
     Route: 065
  99. CISATRACURIUM BESYLATE [Suspect]
     Active Substance: CISATRACURIUM BESYLATE
     Indication: Endotracheal intubation
     Dosage: 20 MILLIGRAM,QD
     Route: 042
     Dates: start: 20200715, end: 20200715
  100. CISATRACURIUM BESYLATE [Suspect]
     Active Substance: CISATRACURIUM BESYLATE
     Indication: Neuromuscular blocking therapy
  101. POTASSIUM CHLORIDE [Suspect]
     Active Substance: POTASSIUM CHLORIDE
     Dosage: UNK
     Route: 065
  102. POTASSIUM CHLORIDE [Suspect]
     Active Substance: POTASSIUM CHLORIDE
     Dosage: UNK
     Route: 042
  103. LORAZEPAM [Suspect]
     Active Substance: LORAZEPAM
     Indication: Anxiolytic therapy
     Dosage: 2.5 MILLIGRAM
     Route: 048
     Dates: start: 20200726, end: 20200727
  104. LORAZEPAM [Suspect]
     Active Substance: LORAZEPAM
     Dosage: 10 MILLIGRAM, QD
     Route: 048
  105. LORAZEPAM [Suspect]
     Active Substance: LORAZEPAM
     Dosage: 10 MILLIGRAM,QD
     Route: 048
  106. LORAZEPAM [Suspect]
     Active Substance: LORAZEPAM
     Dosage: 10 MILLIGRAM,QD
     Route: 048
     Dates: start: 20200726, end: 20200727
  107. LORAZEPAM [Suspect]
     Active Substance: LORAZEPAM
     Dosage: 2.5 MILLIGRAM, QID
     Route: 048
     Dates: start: 20200726, end: 20200727
  108. LORAZEPAM [Suspect]
     Active Substance: LORAZEPAM
     Dosage: 40 MILLIGRAM, QD
     Route: 048
     Dates: start: 20200726, end: 20200727
  109. ENOXAPARIN SODIUM [Suspect]
     Active Substance: ENOXAPARIN SODIUM
     Indication: Phlebitis
     Dosage: 6000 INTERNATIONAL UNIT
     Route: 058
  110. ENOXAPARIN SODIUM [Suspect]
     Active Substance: ENOXAPARIN SODIUM
     Dosage: 6000 INTERNATIONAL UNIT
     Route: 058
     Dates: start: 20200708, end: 20200807
  111. ENOXAPARIN SODIUM [Suspect]
     Active Substance: ENOXAPARIN SODIUM
     Dosage: 1800000 INTERNATIONAL UNIT
     Route: 065
  112. INSULIN LISPRO [Suspect]
     Active Substance: INSULIN LISPRO
     Dosage: 1 IU
     Route: 042
     Dates: start: 20200709, end: 20200730
  113. FUROSEMIDE [Suspect]
     Active Substance: FUROSEMIDE
     Dosage: UNK
     Route: 065
  114. OXAZEPAM [Suspect]
     Active Substance: OXAZEPAM
     Indication: Anxiolytic therapy
     Dosage: 10 MG, 1X/DAY
     Route: 048
     Dates: start: 20200802, end: 20200804
  115. OXAZEPAM [Suspect]
     Active Substance: OXAZEPAM
     Dosage: 90 MILLIGRAM
     Route: 065
  116. OXAZEPAM [Suspect]
     Active Substance: OXAZEPAM
     Dosage: 20 MG, 1X/DAY
     Route: 048
  117. OXAZEPAM [Suspect]
     Active Substance: OXAZEPAM
     Dosage: 20 MILLIGRAM
     Route: 065
  118. OXAZEPAM [Suspect]
     Active Substance: OXAZEPAM
     Dosage: 90 MILLIGRAM, QD
     Route: 065
  119. OXAZEPAM [Suspect]
     Active Substance: OXAZEPAM
     Dosage: 20 MILLIGRAM, QD
     Route: 048
  120. OXAZEPAM [Suspect]
     Active Substance: OXAZEPAM
     Dosage: 10 MILLIGRAM, QD
     Route: 048
  121. OXAZEPAM [Suspect]
     Active Substance: OXAZEPAM
     Dosage: 10 MILLIGRAM, QD
     Route: 048
     Dates: start: 20200802, end: 20200804
  122. ISOSORBIDE DINITRATE [Suspect]
     Active Substance: ISOSORBIDE DINITRATE
     Dosage: UNK
     Route: 065
     Dates: start: 20200714, end: 20200720
  123. LOPERAMIDE HYDROCHLORIDE [Suspect]
     Active Substance: LOPERAMIDE HYDROCHLORIDE
     Indication: Diarrhoea
     Dosage: 4 MILLIGRAM, QD
     Route: 048
     Dates: start: 20200804, end: 20200804
  124. LOPERAMIDE HYDROCHLORIDE [Suspect]
     Active Substance: LOPERAMIDE HYDROCHLORIDE
     Dosage: 4 MG
     Route: 065
  125. CLONIDINE [Suspect]
     Active Substance: CLONIDINE
     Indication: Hypertension
     Dosage: UNK UNK, QD
     Route: 042
     Dates: start: 20200717, end: 20200717
  126. NIMBEX [Suspect]
     Active Substance: CISATRACURIUM BESYLATE
     Indication: Endotracheal intubation
     Dosage: 20 MG, 1X/DAY
     Route: 042
     Dates: start: 20200715, end: 20200715
  127. NIMBEX [Suspect]
     Active Substance: CISATRACURIUM BESYLATE
     Indication: Neuromuscular blocking therapy
  128. LACTULOSE [Suspect]
     Active Substance: LACTULOSE
     Indication: Constipation
     Dosage: 80 GRAM
     Route: 048
  129. LACTULOSE [Suspect]
     Active Substance: LACTULOSE
     Dosage: 20 GRAM, BID
     Route: 048
     Dates: start: 20200713, end: 20200715
  130. LACTULOSE [Suspect]
     Active Substance: LACTULOSE
     Dosage: 40 GRAM, QD
     Route: 048
     Dates: start: 20200713, end: 20200715
  131. LACTULOSE [Suspect]
     Active Substance: LACTULOSE
     Dosage: 80 GRAM
     Route: 048
  132. LACTULOSE [Suspect]
     Active Substance: LACTULOSE
     Dosage: 80 GRAM
     Route: 048
  133. LACTULOSE [Suspect]
     Active Substance: LACTULOSE
     Dosage: 40 GRAM, QD
     Route: 048
  134. LACTULOSE [Suspect]
     Active Substance: LACTULOSE
     Dosage: 80 GRAM
     Route: 048
  135. LACTULOSE [Suspect]
     Active Substance: LACTULOSE
     Dosage: 80 GRAM
     Route: 048
  136. LACTULOSE [Suspect]
     Active Substance: LACTULOSE
     Dosage: 80 GRAM
     Route: 048
  137. LACTULOSE [Suspect]
     Active Substance: LACTULOSE
     Dosage: 80 GRAM
     Route: 048
  138. FUROSEMIDE [Suspect]
     Active Substance: FUROSEMIDE
     Dosage: UNK
     Route: 065
  139. ISOPROTERENOL HYDROCHLORIDE [Suspect]
     Active Substance: ISOPROTERENOL HYDROCHLORIDE
     Dosage: UNK
     Route: 065
     Dates: start: 20200711, end: 20200713
  140. AMIODARONE [Suspect]
     Active Substance: AMIODARONE
     Indication: Atrial fibrillation
     Dosage: 907.2 MILLIGRAM, QD
     Route: 042
     Dates: start: 20200725, end: 20200727
  141. AMIODARONE [Suspect]
     Active Substance: AMIODARONE
     Dosage: 1814.4 MILLIGRAM
     Route: 042
     Dates: start: 20200725, end: 20200727
  142. AMIODARONE [Suspect]
     Active Substance: AMIODARONE
     Dosage: UNK
  143. POTASSIUM GLUCONATE [Suspect]
     Active Substance: POTASSIUM GLUCONATE
     Dosage: UNK
     Route: 065
  144. SPIRAMYCIN [Suspect]
     Active Substance: SPIRAMYCIN
     Indication: Pneumonia
     Dosage: 9 INTERNATIONAL UNIT, QD
     Route: 042
     Dates: start: 20200708, end: 20200715
  145. FENOTEROL\IPRATROPIUM [Suspect]
     Active Substance: FENOTEROL\IPRATROPIUM
     Indication: Bronchial disorder
     Dosage: 1.5 MILLIGRAM, TID
     Route: 055
     Dates: start: 20200730, end: 20200803
  146. FENOTEROL\IPRATROPIUM [Suspect]
     Active Substance: FENOTEROL\IPRATROPIUM
     Indication: Inhalation therapy
     Dosage: 6 MG
     Route: 055
  147. FENOTEROL\IPRATROPIUM [Suspect]
     Active Substance: FENOTEROL\IPRATROPIUM
     Dosage: 0.5 MILLIGRAM, TID
     Route: 055
     Dates: start: 20200730, end: 20200803
  148. FENOTEROL\IPRATROPIUM [Suspect]
     Active Substance: FENOTEROL\IPRATROPIUM
     Dosage: 10.5 MG
     Route: 065
  149. FENOTEROL\IPRATROPIUM [Suspect]
     Active Substance: FENOTEROL\IPRATROPIUM
     Dosage: 6 MG
     Route: 055
  150. FENOTEROL\IPRATROPIUM [Suspect]
     Active Substance: FENOTEROL\IPRATROPIUM
     Dosage: 4.5 MG, 1X/DAY
     Route: 065
     Dates: start: 20200730, end: 20200730
  151. RACECADOTRIL [Suspect]
     Active Substance: RACECADOTRIL
     Dosage: UNK
     Route: 065
  152. RACECADOTRIL [Suspect]
     Active Substance: RACECADOTRIL
     Dosage: 100 MILLIGRAM
     Route: 058
     Dates: start: 20200727, end: 20200804
  153. CALCIUM GLUCEPTATE [Suspect]
     Active Substance: CALCIUM GLUCEPTATE
     Dosage: UNK
     Route: 065
  154. THIAMINE HYDROCHLORIDE [Suspect]
     Active Substance: THIAMINE HYDROCHLORIDE
     Dosage: UNK
     Route: 065
  155. THIAMINE HYDROCHLORIDE [Suspect]
     Active Substance: THIAMINE HYDROCHLORIDE
     Dosage: UNK
     Route: 065
  156. POTASSIUM GLUCONATE [Concomitant]
     Active Substance: POTASSIUM GLUCONATE
     Dosage: UNK
     Route: 065
  157. ATORVASTATIN [Concomitant]
     Active Substance: ATORVASTATIN
     Dosage: UNK
     Route: 065
  158. HYDROXYUREA [Concomitant]
     Active Substance: HYDROXYUREA
     Dosage: UNK
     Route: 042
     Dates: start: 20200709, end: 20200712
  159. KARDEGIC [Concomitant]
     Active Substance: ASPIRIN DL-LYSINE
     Dosage: UNK
     Route: 065
  160. KARDEGIC [Concomitant]
     Active Substance: ASPIRIN DL-LYSINE
     Dosage: UNK
     Route: 065
  161. AMIODARONE [Concomitant]
     Active Substance: AMIODARONE
     Indication: Atrial fibrillation
     Dosage: 907.2 MILLIGRAM, CO
     Route: 042
     Dates: start: 20200725, end: 20200727
  162. CALCIUM GLUCONATE [Suspect]
     Active Substance: CALCIUM GLUCONATE

REACTIONS (1)
  - Toxic epidermal necrolysis [Fatal]

NARRATIVE: CASE EVENT DATE: 20200809
